FAERS Safety Report 10411076 (Version 2)
Quarter: 2014Q3

REPORT INFORMATION
  Report Type: Report from Study
  Country: BR (occurrence: BR)
  Receive Date: 20140826
  Receipt Date: 20140826
  Transmission Date: 20150326
  Serious: Yes (Hospitalization, Other)
  Sender: FDA-Public Use
  Company Number: BR-ABBVIE-13P-020-1075022-00

PATIENT
  Age: 64 Year
  Sex: Female
  Weight: 75 kg

DRUGS (20)
  1. HUMIRA [Suspect]
     Active Substance: ADALIMUMAB
     Indication: OSTEOARTHRITIS
     Route: 058
     Dates: start: 20130103, end: 201304
  2. ATENOLOL. [Concomitant]
     Active Substance: ATENOLOL
     Indication: PRODUCT USED FOR UNKNOWN INDICATION
     Route: 048
  3. ARAVA [Concomitant]
     Active Substance: LEFLUNOMIDE
     Indication: OSTEOPOROSIS
     Dates: start: 201104, end: 201212
  4. ARAVA [Concomitant]
     Active Substance: LEFLUNOMIDE
     Indication: RHEUMATOID ARTHRITIS
  5. ENALAPRIL MALEATE. [Concomitant]
     Active Substance: ENALAPRIL MALEATE
     Indication: PRODUCT USED FOR UNKNOWN INDICATION
  6. CALCIUM CARBONATE W/COLECALCIFEROL [Concomitant]
     Active Substance: CALCIUM CARBONATE\CHOLECALCIFEROL
     Indication: MINERAL SUPPLEMENTATION
     Dosage: 600MG + 400MG
  7. HYDROCHLOROTHIAZIDE. [Concomitant]
     Active Substance: HYDROCHLOROTHIAZIDE
     Indication: PRODUCT USED FOR UNKNOWN INDICATION
  8. PREDNISONE. [Concomitant]
     Active Substance: PREDNISONE
     Indication: PRODUCT USED FOR UNKNOWN INDICATION
     Dates: start: 201012, end: 201303
  9. THIAMINE HYDROCHLORIDE. [Concomitant]
     Active Substance: THIAMINE HYDROCHLORIDE
     Indication: PRODUCT USED FOR UNKNOWN INDICATION
  10. METHOTREXATE [Concomitant]
     Active Substance: METHOTREXATE
     Indication: RHEUMATOID ARTHRITIS
  11. VANCOMYCIN [Suspect]
     Active Substance: VANCOMYCIN
     Indication: INFECTION
     Dates: start: 20130322
  12. ACYCLOVIR. [Suspect]
     Active Substance: ACYCLOVIR
     Indication: MOUTH ULCERATION
     Route: 042
     Dates: start: 20130325, end: 20130401
  13. PREDNISONE. [Concomitant]
     Active Substance: PREDNISONE
  14. UNKNOWN DRUG [Concomitant]
     Active Substance: UNSPECIFIED INGREDIENT
     Indication: HYPERTENSION
  15. PREDNISONE. [Concomitant]
     Active Substance: PREDNISONE
  16. FOLIC ACID. [Concomitant]
     Active Substance: FOLIC ACID
     Indication: PRODUCT USED FOR UNKNOWN INDICATION
  17. UNKNOWN DRUG [Concomitant]
     Active Substance: UNSPECIFIED INGREDIENT
     Indication: DIABETES MELLITUS
  18. ADEFORTE [Concomitant]
     Active Substance: .ALPHA.-TOCOPHEROL, DL-\CHOLECALCIFEROL\VITAMIN A PALMITATE
     Indication: PRODUCT USED FOR UNKNOWN INDICATION
     Route: 048
  19. HUMIRA [Suspect]
     Active Substance: ADALIMUMAB
     Indication: RHEUMATOID ARTHRITIS
  20. METHOTREXATE [Concomitant]
     Active Substance: METHOTREXATE
     Indication: OSTEOARTHRITIS
     Dates: start: 201012, end: 201307

REACTIONS (20)
  - Influenza [Recovered/Resolved]
  - Hypertension [Unknown]
  - Infection [Recovered/Resolved]
  - Pyrexia [Unknown]
  - Bone marrow failure [Recovered/Resolved]
  - Lip oedema [Unknown]
  - Mouth ulceration [Recovered/Resolved]
  - Generalised oedema [Unknown]
  - Asthenia [Recovered/Resolved]
  - Syncope [Recovered/Resolved]
  - Skin ulcer [Recovered/Resolved]
  - Odynophagia [Unknown]
  - Transfusion reaction [Unknown]
  - Pancytopenia [Recovered/Resolved]
  - Renal failure acute [Recovering/Resolving]
  - Coma [Recovered/Resolved]
  - Unevaluable event [Unknown]
  - Septic shock [Recovered/Resolved]
  - Sinusitis [Recovered/Resolved]
  - Febrile neutropenia [Recovered/Resolved]

NARRATIVE: CASE EVENT DATE: 201303
